FAERS Safety Report 8981595 (Version 1)
Quarter: 2012Q4

REPORT INFORMATION
  Report Type: 
  Country: US (occurrence: US)
  Receive Date: 20121212
  Receipt Date: 20121212
  Transmission Date: 20130627
  Serious: Yes (Death, Other)
  Sender: FDA-Public Use
  Company Number: US-ASTELLAS-1124467

PATIENT
  Sex: Female

DRUGS (4)
  1. AVASTIN [Suspect]
     Indication: MALIGNANT RESPIRATORY TRACT NEOPLASM
     Route: 065
     Dates: start: 20050607, end: 20050810
  2. AVASTIN [Suspect]
     Indication: RENAL CELL CARCINOMA
  3. TARCEVA [Suspect]
     Indication: RENAL CELL CARCINOMA
     Route: 065
     Dates: start: 20050607, end: 20050810
  4. ZOMETA [Concomitant]
     Route: 065
     Dates: start: 20050607, end: 20050810

REACTIONS (3)
  - Death [Fatal]
  - Metastasis [Unknown]
  - Neoplasm [Unknown]
